FAERS Safety Report 5065030-8 (Version None)
Quarter: 2006Q3

REPORT INFORMATION
  Report Type: 
  Country: None (occurrence: None)
  Receive Date: 20060726
  Receipt Date: 20060717
  Transmission Date: 20061208
  Serious: Yes (Hospitalization)
  Sender: FDA-Public Use
  Company Number: 2006-DE-03191GD

PATIENT
  Age: 47 Year
  Sex: Female

DRUGS (3)
  1. PREDNISONE TAB [Suspect]
     Indication: SYSTEMIC SCLEROSIS
     Dosage: 10 MG
  2. CYCLOPHOSPHAMIDE [Concomitant]
  3. AZATHIOPRINE SODIUM [Concomitant]

REACTIONS (6)
  - ALOPECIA [None]
  - RESORPTION BONE INCREASED [None]
  - SKIN DEPIGMENTATION [None]
  - SKIN LESION [None]
  - TELANGIECTASIA [None]
  - TOOTH LOSS [None]
